FAERS Safety Report 7525071-5 (Version None)
Quarter: 2011Q2

REPORT INFORMATION
  Report Type: 
  Country: None (occurrence: None)
  Receive Date: 20110606
  Receipt Date: 20110531
  Transmission Date: 20111010
  Serious: Yes (Other)
  Sender: FDA-Public Use
  Company Number: US-AMGEN-USASP2011020678

PATIENT
  Sex: Female

DRUGS (3)
  1. ENBREL [Suspect]
     Indication: PSORIASIS
  2. ENBREL [Suspect]
     Dates: start: 20090401
  3. ENBREL [Suspect]
     Indication: PSORIATIC ARTHROPATHY
     Dosage: 50 MG, QWK

REACTIONS (3)
  - PSORIATIC ARTHROPATHY [None]
  - ABORTION SPONTANEOUS [None]
  - OROPHARYNGEAL PAIN [None]
